FAERS Safety Report 24591088 (Version 3)
Quarter: 2024Q4

REPORT INFORMATION
  Report Type: Report from Study
  Country: CA (occurrence: CA)
  Receive Date: 20241107
  Receipt Date: 20241223
  Transmission Date: 20250114
  Serious: Yes (Hospitalization, Other)
  Sender: CSL BEHRING
  Company Number: CA-BEH-2024169109

PATIENT
  Age: 78 Year
  Sex: Female
  Weight: 62 kg

DRUGS (18)
  1. HIZENTRA [Suspect]
     Active Substance: HUMAN IMMUNOGLOBULIN G
     Indication: Secondary immunodeficiency
     Dosage: 12 GRAM, QW
     Route: 065
     Dates: start: 20230414
  2. HIZENTRA [Suspect]
     Active Substance: HUMAN IMMUNOGLOBULIN G
     Dosage: UNK
     Route: 065
     Dates: start: 20240221
  3. HIZENTRA [Suspect]
     Active Substance: HUMAN IMMUNOGLOBULIN G
     Dosage: UNK
     Route: 065
     Dates: start: 20240306
  4. HIZENTRA [Suspect]
     Active Substance: HUMAN IMMUNOGLOBULIN G
     Dosage: 12 GRAM, QOW
     Route: 065
     Dates: start: 20230414
  5. HIZENTRA [Suspect]
     Active Substance: HUMAN IMMUNOGLOBULIN G
     Dosage: UNK
     Route: 065
     Dates: start: 20240318
  6. HIZENTRA [Suspect]
     Active Substance: HUMAN IMMUNOGLOBULIN G
     Dosage: UNK
     Route: 065
     Dates: start: 20230414
  7. HIZENTRA [Suspect]
     Active Substance: HUMAN IMMUNOGLOBULIN G
     Dosage: UNK
     Route: 065
     Dates: start: 20240408
  8. HIZENTRA [Suspect]
     Active Substance: HUMAN IMMUNOGLOBULIN G
     Dosage: UNK
     Route: 065
     Dates: start: 20230414
  9. HIZENTRA [Suspect]
     Active Substance: HUMAN IMMUNOGLOBULIN G
     Dosage: UNK
     Route: 065
     Dates: start: 20240422
  10. HIZENTRA [Suspect]
     Active Substance: HUMAN IMMUNOGLOBULIN G
     Dosage: UNK
     Route: 065
     Dates: start: 20240506
  11. HIZENTRA [Suspect]
     Active Substance: HUMAN IMMUNOGLOBULIN G
     Dosage: UNK
     Route: 065
     Dates: start: 20240605
  12. HIZENTRA [Suspect]
     Active Substance: HUMAN IMMUNOGLOBULIN G
     Dosage: UNK
     Route: 065
     Dates: start: 20240619
  13. HIZENTRA [Suspect]
     Active Substance: HUMAN IMMUNOGLOBULIN G
     Dosage: UNK
     Route: 065
     Dates: start: 20240717
  14. HIZENTRA [Suspect]
     Active Substance: HUMAN IMMUNOGLOBULIN G
     Dosage: 12 G, QOW
     Route: 065
     Dates: start: 20230414
  15. HIZENTRA [Suspect]
     Active Substance: HUMAN IMMUNOGLOBULIN G
     Dosage: 12 G, QOW
     Route: 065
     Dates: start: 20230414
  16. HIZENTRA [Suspect]
     Active Substance: HUMAN IMMUNOGLOBULIN G
     Dosage: 12 G, QOW (Q 2 WEEKS)
     Route: 065
     Dates: start: 202410
  17. HIZENTRA [Suspect]
     Active Substance: HUMAN IMMUNOGLOBULIN G
     Dosage: 12 G, QOW (Q 2 WEEKS)
     Route: 065
     Dates: start: 20230414
  18. SYNTHROID [Concomitant]
     Active Substance: LEVOTHYROXINE SODIUM

REACTIONS (35)
  - Pneumonia [Unknown]
  - Dyspnoea [Unknown]
  - Hypophagia [Unknown]
  - Nausea [Unknown]
  - Dehydration [Unknown]
  - Back pain [Unknown]
  - Diarrhoea [Unknown]
  - Diarrhoea [Unknown]
  - Back pain [Recovered/Resolved]
  - Diarrhoea [Unknown]
  - Vaginal discharge [Unknown]
  - Arthralgia [Unknown]
  - Fatigue [Unknown]
  - Back pain [Unknown]
  - Diarrhoea [Recovered/Resolved]
  - Diarrhoea [Unknown]
  - Weight decreased [Unknown]
  - Hypotension [Unknown]
  - Weight decreased [Unknown]
  - Urinary tract infection [Unknown]
  - Vulvovaginal discomfort [Unknown]
  - Weight decreased [Unknown]
  - Decreased appetite [Unknown]
  - Infusion site erythema [Unknown]
  - Infusion site oedema [Unknown]
  - Product dose omission issue [Unknown]
  - Product dose omission issue [Unknown]
  - Diarrhoea [Unknown]
  - Injection site erythema [Unknown]
  - Infusion site oedema [Unknown]
  - Diarrhoea [Unknown]
  - Weight decreased [Unknown]
  - Decreased appetite [Unknown]
  - Fatigue [Unknown]
  - Diarrhoea [Unknown]

NARRATIVE: CASE EVENT DATE: 20240101
